FAERS Safety Report 15888543 (Version 1)
Quarter: 2019Q1

REPORT INFORMATION
  Report Type: Other
  Country: SE (occurrence: US)
  Receive Date: 20190130
  Receipt Date: 20190130
  Transmission Date: 20190417
  Serious: Yes (Other)
  Sender: FDA-Public Use
  Company Number: US-GUARDIAN DRUG COMPANY-2061915

PATIENT
  Age: 74 Year
  Sex: Male

DRUGS (4)
  1. AMOXICILLIN. [Suspect]
     Active Substance: AMOXICILLIN
     Route: 048
  2. CAFFEINE, PAPAVER SOMINFERUN; PARACETOMOL [Concomitant]
     Route: 048
  3. CHILDRENS IBUPROFEN [Suspect]
     Active Substance: IBUPROFEN
     Indication: PROPHYLAXIS
     Route: 048
  4. CODEINE [Suspect]
     Active Substance: CODEINE
     Route: 048

REACTIONS (1)
  - Meningitis aseptic [Recovered/Resolved]
